FAERS Safety Report 14293342 (Version 3)
Quarter: 2018Q2

REPORT INFORMATION
  Report Type: Spontaneous
  Country: CA (occurrence: CA)
  Receive Date: 20171215
  Receipt Date: 20180510
  Transmission Date: 20180711
  Serious: Yes (Other)
  Sender: FDA-Public Use
  Company Number: CA-009507513-1712CAN007931

PATIENT
  Age: 29 Year
  Sex: Female

DRUGS (3)
  1. DESOGESTREL (+) ETHINYL ESTRADIOL [Suspect]
     Active Substance: DESOGESTREL\ETHINYL ESTRADIOL
     Indication: CONTRACEPTION
     Dosage: 1 DOSE DAILY
     Route: 048
     Dates: start: 201611, end: 20171208
  2. PENICILLIN G POTASSIUM. [Interacting]
     Active Substance: PENICILLIN G POTASSIUM
     Indication: ORAL SURGERY
     Dosage: UNK
     Route: 065
     Dates: start: 201711, end: 2017
  3. TYLENOL [Concomitant]
     Active Substance: ACETAMINOPHEN

REACTIONS (3)
  - Drug ineffective [Unknown]
  - Pregnancy on oral contraceptive [Unknown]
  - Labelled drug-drug interaction medication error [Unknown]

NARRATIVE: CASE EVENT DATE: 20171208
